FAERS Safety Report 23270992 (Version 1)
Quarter: 2023Q4

REPORT INFORMATION
  Report Type: Spontaneous
  Country: US (occurrence: None)
  Receive Date: 20231206
  Receipt Date: 20231206
  Transmission Date: 20240109
  Serious: Yes (unspecified)
  Sender: FDA-Public Use
  Company Number: None

PATIENT
  Age: 61 Year
  Sex: Male

DRUGS (1)
  1. COSENTYX [Suspect]
     Active Substance: SECUKINUMAB
     Dosage: OTHER FREQUENCY : EVERY 4;?
     Dates: start: 20230906, end: 20231103

REACTIONS (5)
  - Hypersensitivity [None]
  - Septic shock [None]
  - Joint swelling [None]
  - Arthropathy [None]
  - Asthenia [None]

NARRATIVE: CASE EVENT DATE: 20231105
